FAERS Safety Report 11149149 (Version 1)
Quarter: 2015Q2

REPORT INFORMATION
  Report Type: Report from Study
  Country: CZ (occurrence: CZ)
  Receive Date: 20150529
  Receipt Date: 20150529
  Transmission Date: 20150821
  Serious: Yes (Other)
  Sender: FDA-Public Use
  Company Number: CZ-GLAXOSMITHKLINE-CZ2015GSK070537

PATIENT
  Age: 72 Year
  Sex: Male

DRUGS (6)
  1. ANOPYRIN 100 [Concomitant]
     Indication: PROPHYLAXIS
     Dosage: UNK
  2. PRESTANCE [Concomitant]
     Indication: HYPERTENSION
     Dosage: UNK
  3. BIOPRON [Concomitant]
     Indication: PRODUCT USED FOR UNKNOWN INDICATION
     Dosage: UNK
  4. PAZOPANIB [Suspect]
     Active Substance: PAZOPANIB
     Indication: PRODUCT USED FOR UNKNOWN INDICATION
     Dosage: 400 MG, UNK
     Dates: start: 20140608
  5. PAZOPANIB [Suspect]
     Active Substance: PAZOPANIB
     Dosage: 600 UNK, UNK
     Dates: start: 20140902, end: 20150306
  6. SECATOXIN [Concomitant]
     Indication: PRODUCT USED FOR UNKNOWN INDICATION
     Dosage: UNK

REACTIONS (1)
  - Atrial fibrillation [Recovered/Resolved]

NARRATIVE: CASE EVENT DATE: 20150304
